FAERS Safety Report 24409082 (Version 2)
Quarter: 2024Q4

REPORT INFORMATION
  Report Type: Spontaneous
  Country: PT (occurrence: PT)
  Receive Date: 20241008
  Receipt Date: 20241015
  Transmission Date: 20250115
  Serious: Yes (Other)
  Sender: AUROBINDO
  Company Number: PT-AUROBINDO-AUR-APL-2024-042567

PATIENT
  Age: 59 Year
  Sex: Female

DRUGS (13)
  1. DULOXETINE [Suspect]
     Active Substance: DULOXETINE
     Indication: Product used for unknown indication
     Dosage: UNK
     Route: 065
  2. TIAPRIDE [Suspect]
     Active Substance: TIAPRIDE
     Indication: Alcohol detoxification
     Dosage: UNK
     Route: 065
     Dates: start: 202110
  3. TIAPRIDE [Suspect]
     Active Substance: TIAPRIDE
     Indication: Alcohol withdrawal syndrome
  4. AMISULPRIDE [Suspect]
     Active Substance: AMISULPRIDE
     Indication: Alcohol detoxification
     Dosage: UNK
     Route: 065
     Dates: start: 202110, end: 202202
  5. AMISULPRIDE [Suspect]
     Active Substance: AMISULPRIDE
     Indication: Alcohol withdrawal syndrome
  6. TOPIRAMATE [Suspect]
     Active Substance: TOPIRAMATE
     Indication: Alcohol detoxification
     Dosage: UNK
     Route: 065
     Dates: start: 202110
  7. TOPIRAMATE [Suspect]
     Active Substance: TOPIRAMATE
     Indication: Alcohol withdrawal syndrome
  8. ESCITALOPRAM [Suspect]
     Active Substance: ESCITALOPRAM OXALATE
     Indication: Alcohol detoxification
     Dosage: UNK
     Route: 065
     Dates: start: 202110
  9. ESCITALOPRAM [Suspect]
     Active Substance: ESCITALOPRAM OXALATE
     Indication: Alcohol withdrawal syndrome
  10. LORAZEPAM [Suspect]
     Active Substance: LORAZEPAM
     Indication: Alcohol detoxification
     Dosage: UNK
     Route: 065
     Dates: start: 202110
  11. LORAZEPAM [Suspect]
     Active Substance: LORAZEPAM
     Indication: Alcohol withdrawal syndrome
  12. DIAZEPAM [Suspect]
     Active Substance: DIAZEPAM
     Indication: Alcohol detoxification
     Dosage: UNK
     Route: 065
     Dates: start: 202110
  13. DIAZEPAM [Suspect]
     Active Substance: DIAZEPAM
     Indication: Alcohol withdrawal syndrome

REACTIONS (3)
  - Torticollis [Unknown]
  - Drug intolerance [Unknown]
  - Off label use [Unknown]

NARRATIVE: CASE EVENT DATE: 20211001
